FAERS Safety Report 7573525-8 (Version None)
Quarter: 2011Q2

REPORT INFORMATION
  Report Type: 
  Country: None (occurrence: None)
  Receive Date: 20110627
  Receipt Date: 20110624
  Transmission Date: 20111010
  Serious: Yes (Life-Threatening, Hospitalization, Other)
  Sender: FDA-Public Use
  Company Number: PHFR2011IE03809

PATIENT
  Sex: Male

DRUGS (5)
  1. CLOZAPINE [Suspect]
     Dosage: 350 MG, UNK
     Dates: start: 20020121
  2. CLOZAPINE [Suspect]
     Dosage: 200 MG, UNK
  3. CLONAZEPAM [Suspect]
     Dosage: 2 X 0.5 MG NOCTE
     Route: 048
     Dates: start: 20071122, end: 20100601
  4. CLONAZEPAM [Suspect]
     Dosage: 0.5 MG X 40+
     Route: 048
     Dates: start: 20100701
  5. VENLAFAXINE [Concomitant]
     Dosage: 225 MG AM

REACTIONS (1)
  - OVERDOSE [None]
